FAERS Safety Report 9482761 (Version 1)
Quarter: 2013Q3

REPORT INFORMATION
  Report Type: Spontaneous
  Country: US (occurrence: US)
  Receive Date: 20130828
  Receipt Date: 20130828
  Transmission Date: 20140515
  Serious: Yes (Other)
  Sender: FDA-Public Use
  Company Number: US-BAYER-2013-100527

PATIENT
  Age: 61 Year
  Sex: Female

DRUGS (2)
  1. AVELOX [Suspect]
     Indication: SINUSITIS
     Dosage: 1 DF, UNK
     Route: 048
     Dates: start: 20130604
  2. AVELOX [Suspect]
     Indication: SINUSITIS
     Dosage: 1 DF, UNK
     Dates: start: 20130812, end: 20130812

REACTIONS (11)
  - Serum sickness [Recovered/Resolved]
  - Influenza [Recovered/Resolved]
  - Rash pruritic [Recovered/Resolved]
  - Pyrexia [Recovered/Resolved]
  - Pyrexia [Recovered/Resolved]
  - Flushing [Recovered/Resolved]
  - Malaise [Recovered/Resolved]
  - Joint swelling [Recovered/Resolved]
  - Pain [Recovered/Resolved]
  - Gait disturbance [Recovered/Resolved]
  - Rash pruritic [Recovered/Resolved]
